FAERS Safety Report 18548996 (Version 1)
Quarter: 2020Q4

REPORT INFORMATION
  Report Type: Report from Study
  Country: None (occurrence: US)
  Receive Date: 20201126
  Receipt Date: 20201126
  Transmission Date: 20210114
  Serious: Yes (Hospitalization, Other)
  Sender: FDA-Public Use
  Company Number: US-ABBVIE-20K-163-3324562-00

PATIENT
  Sex: Female

DRUGS (1)
  1. HUMIRA [Suspect]
     Active Substance: ADALIMUMAB
     Indication: HIDRADENITIS
     Dosage: CITRATE FREE
     Route: 058

REACTIONS (11)
  - Ligament rupture [Unknown]
  - Malaise [Unknown]
  - Incision site erythema [Unknown]
  - Postoperative adhesion [Unknown]
  - Cardiac disorder [Unknown]
  - Illness [Unknown]
  - Abdominal operation [Unknown]
  - Fatigue [Unknown]
  - Beta haemolytic streptococcal infection [Unknown]
  - Hidradenitis [Unknown]
  - Post procedural complication [Unknown]
